FAERS Safety Report 8602351 (Version 3)
Quarter: 2013Q2

REPORT INFORMATION
  Report Type: Report from Study
  Country: JP (occurrence: JP)
  Receive Date: 20120607
  Receipt Date: 20130611
  Transmission Date: 20140414
  Serious: Yes (Hospitalization, Other)
  Sender: FDA-Public Use
  Company Number: JP-VERTEX PHARMACEUTICALS INC.-AE-2012-008091

PATIENT
  Age: 56 Year
  Sex: Male

DRUGS (21)
  1. VX-950 (TELAPREVIR) [Suspect]
     Indication: CHRONIC HEPATITIS C
     Dosage: 2000 MG, QD
     Route: 048
     Dates: start: 20120221, end: 20120222
  2. VX-950 (TELAPREVIR) [Suspect]
     Dosage: 1000 MG, QD
     Route: 048
     Dates: start: 20120223, end: 20120227
  3. VX-950 (TELAPREVIR) [Suspect]
     Dosage: 1500 MG, QD
     Route: 048
     Dates: start: 20120228, end: 20120301
  4. VX-950 (TELAPREVIR) [Suspect]
     Dosage: 2000 MG, QD
     Route: 048
     Dates: start: 20120302, end: 20120409
  5. VX-950 (TELAPREVIR) [Suspect]
     Dosage: 500 MG, QD
     Route: 048
     Dates: start: 20120424, end: 20120425
  6. VX-950 (TELAPREVIR) [Suspect]
     Dosage: 1500 MG, QD
     Route: 048
     Dates: start: 20120426, end: 20120521
  7. PEGINTRON [Suspect]
     Indication: CHRONIC HEPATITIS C
     Dosage: 1.5 ?G/KG, QW
     Route: 058
     Dates: start: 20120221, end: 20120410
  8. PEGINTRON [Suspect]
     Dosage: 1.5 ?G/KG, QW
     Route: 058
     Dates: start: 20120417
  9. REBETOL [Suspect]
     Indication: CHRONIC HEPATITIS C
     Dosage: 800 MG, QD
     Route: 048
     Dates: start: 20120221, end: 20120321
  10. REBETOL [Suspect]
     Dosage: 600 MG, QD
     Route: 048
     Dates: start: 20120322, end: 20120326
  11. REBETOL [Suspect]
     Dosage: 400 MG, QD
     Route: 048
     Dates: start: 20120327, end: 20120409
  12. REBETOL [Suspect]
     Dosage: 200 MG, QD
     Route: 048
     Dates: start: 20120424, end: 20120425
  13. REBETOL [Suspect]
     Dosage: 400 MG, QD
     Route: 048
     Dates: start: 20120426, end: 20120611
  14. REBETOL [Suspect]
     Dosage: 600 MG, QD
     Route: 048
     Dates: start: 20120612, end: 20120709
  15. REBETOL [Suspect]
     Dosage: 800 MG, QD
     Route: 048
     Dates: start: 20120710
  16. PARIET [Concomitant]
     Dosage: 10 MG, QD
     Route: 048
  17. CONIEL [Concomitant]
     Dosage: 4 MG, QD
     Route: 048
  18. PROMAC [Concomitant]
     Dosage: 1 G, QD
     Route: 048
  19. CONSTAN [Concomitant]
     Dosage: 1.2 MG, QD
     Route: 048
  20. CELESTAMINE [Concomitant]
     Dosage: 2 DF, QD
     Route: 048
     Dates: end: 20120413
  21. ALLOPURINOL [Concomitant]
     Dosage: 100 MG, QD
     Route: 048
     Dates: end: 20120419

REACTIONS (2)
  - Depressive symptom [Recovered/Resolved]
  - White blood cell count decreased [Not Recovered/Not Resolved]
